FAERS Safety Report 8758015 (Version 4)
Quarter: 2012Q4

REPORT INFORMATION
  Report Type: 
  Country: US (occurrence: US)
  Receive Date: 20120828
  Receipt Date: 20121004
  Transmission Date: 20130627
  Serious: Yes (Other)
  Sender: FDA-Public Use
  Company Number: US-PFIZER INC-2012207460

PATIENT
  Age: 58 Year
  Sex: Female
  Weight: 52.15 kg

DRUGS (12)
  1. PREMARIN [Suspect]
     Indication: MENOPAUSAL SYMPTOMS
     Dosage: 0.625 mg, 1x/day (3 days internally and 4 days externally )
     Route: 067
     Dates: start: 2007
  2. PREMARIN [Suspect]
     Indication: MENOPAUSAL SYMPTOMS
     Dosage: 0.5 mg, daily (3 days internally and 4 days externally)
     Route: 067
     Dates: start: 2007
  3. PREMARIN [Suspect]
     Indication: PROPHYLAXIS
  4. PREMARIN [Suspect]
     Indication: PROPHYLAXIS
  5. CENESTIN [Suspect]
     Indication: MENOPAUSAL SYMPTOMS
     Dosage: 0.625 mg, 1x/day
     Route: 048
     Dates: start: 2002, end: 2007
  6. TAMSULOSIN HYDROCHLORIDE [Concomitant]
     Indication: BLADDER DISORDER
     Dosage: 0.4 mg, 2x/day
  7. TAMSULOSIN HYDROCHLORIDE [Concomitant]
     Indication: BLADDER SPASM
  8. TAMSULOSIN HYDROCHLORIDE [Concomitant]
     Indication: POLLAKIURIA
  9. OXYBUTYNIN [Concomitant]
     Indication: BLADDER DISORDER
     Dosage: 5 mg, 1x/day
  10. OXYBUTYNIN [Concomitant]
     Indication: BLADDER SPASM
     Dosage: 5 mg, daily
  11. OXYBUTYNIN [Concomitant]
     Indication: POLLAKIURIA
  12. LEVOXYL [Concomitant]
     Indication: THYROID DISORDER
     Dosage: 0.75 mg, 1x/day

REACTIONS (7)
  - Thrombosis [Unknown]
  - Uterine disorder [Unknown]
  - Neoplasm malignant [Unknown]
  - Wrong technique in drug usage process [Unknown]
  - Product quality issue [Unknown]
  - Incorrect product storage [Unknown]
  - Poor quality drug administered [Unknown]
